FAERS Safety Report 6401804-6 (Version None)
Quarter: 2009Q4

REPORT INFORMATION
  Report Type: 
  Country: None (occurrence: None)
  Receive Date: 20091015
  Receipt Date: 20091007
  Transmission Date: 20100525
  Serious: Yes (Other)
  Sender: FDA-Public Use
  Company Number: US-ASTRAZENECA-2009UW18558

PATIENT
  Sex: Female

DRUGS (6)
  1. SYMBICORT [Suspect]
     Indication: ASTHMA
     Dosage: 160 MCG / 4.5 MCG TWICE A DAY
     Route: 055
     Dates: start: 20080101
  2. SYMBICORT [Suspect]
     Dosage: 80/4.5 MCG
     Route: 055
  3. TEGRETOL [Concomitant]
  4. MYSOLINE [Concomitant]
  5. DILANTIN [Concomitant]
  6. ACTONEL [Concomitant]

REACTIONS (5)
  - DRUG INEFFECTIVE [None]
  - INTENTIONAL OVERDOSE [None]
  - NASAL CONGESTION [None]
  - NASAL OPERATION [None]
  - RIB FRACTURE [None]
